FAERS Safety Report 18974899 (Version 4)
Quarter: 2022Q1

REPORT INFORMATION
  Report Type: Report from Study
  Country: US (occurrence: US)
  Receive Date: 20210306
  Receipt Date: 20220209
  Transmission Date: 20220424
  Serious: No
  Sender: FDA-Public Use
  Company Number: NVSC2021US048611

PATIENT
  Age: 62 Year
  Sex: Female

DRUGS (7)
  1. ILARIS [Suspect]
     Active Substance: CANAKINUMAB
     Indication: Pyrexia
     Dosage: 120 MG, EVERY 8 WEEKS
     Route: 058
  2. ILARIS [Suspect]
     Active Substance: CANAKINUMAB
     Dosage: 120 MG, EVERY 8 WEEKS
     Route: 058
     Dates: start: 20201025
  3. ILARIS [Suspect]
     Active Substance: CANAKINUMAB
     Dosage: 120 MG, EVERY 8 WEEKS
     Route: 058
     Dates: start: 2020
  4. ILARIS [Suspect]
     Active Substance: CANAKINUMAB
     Dosage: 120 MG, EVERY 8 WEEKS
     Route: 058
     Dates: start: 20201229
  5. ILARIS [Suspect]
     Active Substance: CANAKINUMAB
     Dosage: 120 MG, EVERY 8 WEEKS
     Route: 058
     Dates: start: 20210219
  6. ILARIS [Suspect]
     Active Substance: CANAKINUMAB
     Dosage: 120 MG, EVERY 8 WEEKS
     Route: 058
     Dates: start: 20211015
  7. ILARIS [Suspect]
     Active Substance: CANAKINUMAB
     Dosage: 120 MG, EVERY 8 WEEKS
     Route: 058
     Dates: start: 20220201

REACTIONS (2)
  - Injection site pain [Recovered/Resolved]
  - Inappropriate schedule of product administration [Unknown]

NARRATIVE: CASE EVENT DATE: 20210219
